FAERS Safety Report 9720768 (Version 2)
Quarter: 2013Q4

REPORT INFORMATION
  Report Type: Report from Study
  Country: DE (occurrence: DE)
  Receive Date: 20131129
  Receipt Date: 20131129
  Transmission Date: 20140711
  Serious: No
  Sender: FDA-Public Use
  Company Number: PHHY2012DE129460

PATIENT
  Sex: Male

DRUGS (7)
  1. AMN107 [Suspect]
     Indication: CHRONIC MYELOID LEUKAEMIA
     Dosage: 600 MG, PER DAY
     Route: 048
     Dates: start: 20120411
  2. ASS [Concomitant]
     Dosage: 100 MG, UNK
  3. CANDESARTAN [Concomitant]
     Dosage: 16 MG, UNK
  4. ATORVASTATIN [Concomitant]
  5. CLOPIDOGREL [Concomitant]
     Dosage: 75 MG, UNK
     Dates: start: 20130102, end: 20130130
  6. SEVREDOL [Concomitant]
     Dosage: 10 MG, UNK
     Dates: start: 20130111
  7. PANTOZOL [Concomitant]
     Dates: start: 20130111

REACTIONS (3)
  - Intermittent claudication [Recovered/Resolved]
  - Fatigue [Recovered/Resolved]
  - Abdominal pain upper [Recovered/Resolved]
